FAERS Safety Report 9803004 (Version 1)
Quarter: 2014Q1

REPORT INFORMATION
  Report Type: Spontaneous
  Country: US (occurrence: None)
  Receive Date: 20140102
  Receipt Date: 20140102
  Transmission Date: 20141002
  Serious: Yes (Death)
  Sender: FDA-Public Use
  Company Number: UTC-042477

PATIENT
  Age: 43 Year
  Sex: Female
  Weight: 42.3 kg

DRUGS (2)
  1. REMODULIN (5 MILLIGRAM/ MILLILITERS, INJECTION FOR INFUSION) (TREPROSTINIL SODIUM) [Suspect]
     Indication: COR PULMONALE CHRONIC
     Dosage: 118.08 UG/KG (0.082 UG/KG, 1 IN 1 MIN
     Route: 058
     Dates: start: 201209
  2. REVATIO (SILDENAFIL CITRATE) [Concomitant]

REACTIONS (1)
  - Death [None]
